FAERS Safety Report 25972660 (Version 2)
Quarter: 2025Q4

REPORT INFORMATION
  Report Type: Spontaneous
  Country: US (occurrence: US)
  Receive Date: 20251029
  Receipt Date: 20251103
  Transmission Date: 20260118
  Serious: No
  Sender: CHATTEM
  Company Number: US-OPELLA-2025OHG031228

PATIENT
  Sex: Female

DRUGS (1)
  1. ALLEGRA ALLERGY [Suspect]
     Active Substance: FEXOFENADINE HYDROCHLORIDE
     Indication: Product used for unknown indication
     Dates: end: 20251023

REACTIONS (3)
  - Bladder disorder [Unknown]
  - Pain [Unknown]
  - Genital burning sensation [Unknown]

NARRATIVE: CASE EVENT DATE: 20251001
